FAERS Safety Report 16699451 (Version 1)
Quarter: 2019Q3

REPORT INFORMATION
  Report Type: Spontaneous
  Country: US (occurrence: US)
  Receive Date: 20190813
  Receipt Date: 20190813
  Transmission Date: 20191004
  Serious: No
  Sender: FDA-Public Use
  Company Number: US-ASSERTIO THERAPEUTICS, INC.-US-2019DEP000277

PATIENT
  Sex: Male

DRUGS (1)
  1. CAMBIA [Suspect]
     Active Substance: DICLOFENAC POTASSIUM
     Indication: MIGRAINE
     Dosage: MIXED 1 PACKET IN 1-2 OUNCES OF WATER, PRN
     Route: 048
     Dates: start: 20181227

REACTIONS (2)
  - Dysgeusia [Recovering/Resolving]
  - Hypoaesthesia oral [Recovering/Resolving]
